FAERS Safety Report 10053651 (Version 1)
Quarter: 2014Q2

REPORT INFORMATION
  Report Type: Spontaneous
  Country: US (occurrence: US)
  Receive Date: 20140402
  Receipt Date: 20140402
  Transmission Date: 20141212
  Serious: No
  Sender: FDA-Public Use
  Company Number: US-PFIZER INC-2014091898

PATIENT
  Age: 73 Year
  Sex: Female
  Weight: 63.5 kg

DRUGS (4)
  1. XELJANZ [Suspect]
     Indication: ARTHRITIS
     Dosage: 5 MG, 2X/DAY
     Route: 048
     Dates: start: 20140308
  2. XELJANZ [Suspect]
     Indication: ARTHRITIS
  3. LISINOPRIL [Concomitant]
     Indication: HYPERTENSION
     Dosage: UNK
  4. LIPITOR [Concomitant]
     Dosage: UNK

REACTIONS (1)
  - Upper respiratory tract infection [Not Recovered/Not Resolved]
